FAERS Safety Report 20299950 (Version 1)
Quarter: 2022Q1

REPORT INFORMATION
  Report Type: Spontaneous
  Country: CN (occurrence: CN)
  Receive Date: 20220105
  Receipt Date: 20220105
  Transmission Date: 20220423
  Serious: Yes (Life-Threatening, Hospitalization)
  Sender: FDA-Public Use
  Company Number: CN-ELI_LILLY_AND_COMPANY-CN202201000463

PATIENT
  Age: 50 Year
  Sex: Female
  Weight: 38 kg

DRUGS (4)
  1. GEMZAR [Suspect]
     Active Substance: GEMCITABINE HYDROCHLORIDE
     Indication: Breast cancer female
     Dosage: 1200 MG, WEEKLY (1/W)
     Route: 041
     Dates: start: 20211124, end: 20211201
  2. CISPLATIN [Suspect]
     Active Substance: CISPLATIN
     Indication: Breast cancer female
     Dosage: 30 MG, DAILY
     Route: 041
     Dates: start: 20211124, end: 20211126
  3. SODIUM CHLORIDE [Concomitant]
     Active Substance: SODIUM CHLORIDE
     Indication: Medication dilution
     Dosage: 200 ML, WEEKLY (1/W)
     Route: 041
     Dates: start: 20211124, end: 20211201
  4. SODIUM CHLORIDE [Concomitant]
     Active Substance: SODIUM CHLORIDE
     Dosage: 500 ML, DAILY
     Route: 041
     Dates: start: 20211124, end: 20211126

REACTIONS (1)
  - Myelosuppression [Recovering/Resolving]

NARRATIVE: CASE EVENT DATE: 20211203
